FAERS Safety Report 8929477 (Version 1)
Quarter: 2012Q4

REPORT INFORMATION
  Report Type: Spontaneous
  Country: US (occurrence: None)
  Receive Date: 20121120
  Receipt Date: 20121120
  Transmission Date: 20130627
  Serious: Yes (Other)
  Sender: FDA-Public Use
  Company Number: FK201203362

PATIENT
  Age: 19 Year
  Sex: Female

DRUGS (3)
  1. CISPLATIN (MANUFACTURER UNKNOWN){CISPLATIN)(CISPLATIN) [Suspect]
     Indication: BONE SARCOMA
     Dosage: weeks 1, 6, 12, 17
     Route: 042
  2. DOXORUBICIN [Suspect]
     Indication: BONE SARCOMA
     Dosage: weeks 6 12, 17, 22, 26
  3. METHOTREXATE [Suspect]
     Indication: BONE SARCOMA
     Dosage: weeks 4, 5, 9, 10, 15, 16, 20, 21, 24, 2

REACTIONS (5)
  - Stomatitis [None]
  - Febrile neutropenia [None]
  - Alopecia [None]
  - Constipation [None]
  - Stomatitis [None]
